FAERS Safety Report 9518894 (Version 1)
Quarter: 2013Q1

REPORT INFORMATION
  Report Type: Spontaneous
  Country: US (occurrence: None)
  Receive Date: 20130305
  Receipt Date: 20130305
  Transmission Date: 20140127
  Serious: Yes (Hospitalization)
  Sender: FDA-Public Use
  Company Number: 163-21880-12053038

PATIENT
  Age: 61 Year
  Sex: Female

DRUGS (13)
  1. REVLIMID [Suspect]
     Indication: PLASMA CELL MYELOMA
     Route: 048
     Dates: start: 20090728, end: 20120523
  2. METHYLPREDNISONE (METHYLPREDNISOLONE) (UNKNOWN) [Concomitant]
  3. CYMBALTA(DULOXETINE HYDROCHLORIDE)(UNKNOWN) [Concomitant]
  4. LORAZEPAM(LORAZEPAM)(UNKNOWN) [Concomitant]
  5. ACYCLOVIR(ACICLOVIR)(UNKNOWN) [Concomitant]
  6. GABAPENTIN(GABAPENTIN)(UNKNOWN) [Concomitant]
  7. AMOXICILLIN/CLAVULANATE P(UNKNOWN) [Concomitant]
  8. HYDROCODONE/APAP(VICODIN)(UNKNOWN) [Concomitant]
  9. MORPHINE SULFATE ER(MORPHINE SULFATE)(UNKNOWN) [Concomitant]
  10. AZITHROMYCIN(AZITHROMYCIN)(UNKNOWN) [Concomitant]
  11. FOLIC ACID(FOLIC ACID)(UNKNOWN) [Concomitant]
  12. FENTANYL(FENTANYL) (UNKNOWN) [Concomitant]
  13. SINGULAIR [Concomitant]

REACTIONS (2)
  - Pneumonia [None]
  - Drug dose omission [None]
